FAERS Safety Report 10439350 (Version 1)
Quarter: 2014Q3

REPORT INFORMATION
  Report Type: Spontaneous
  Country: GB (occurrence: None)
  Receive Date: 20140905
  Receipt Date: 20140905
  Transmission Date: 20150326
  Serious: Yes (Death)
  Sender: FDA-Public Use
  Company Number: 2514771

PATIENT
  Age: 31 Year
  Sex: Female

DRUGS (1)
  1. (PROPOFOL) [Suspect]
     Active Substance: PROPOFOL
     Indication: MECHANICAL VENTILATION
     Dosage: UNKNOWN, UNKNOWN , UNKNOWN

REACTIONS (8)
  - Multi-organ failure [None]
  - General physical health deterioration [None]
  - Propofol infusion syndrome [None]
  - Haemodynamic instability [None]
  - Septic shock [None]
  - Urosepsis [None]
  - Rhabdomyolysis [None]
  - Hypoxia [None]
